FAERS Safety Report 8214769-1 (Version None)
Quarter: 2012Q1

REPORT INFORMATION
  Report Type: 
  Country: None (occurrence: None)
  Receive Date: 20120316
  Receipt Date: 20120302
  Transmission Date: 20120608
  Serious: Yes (Life-Threatening, Congenital Anomaly, Other)
  Sender: FDA-Public Use
  Company Number: US-ELI_LILLY_AND_COMPANY-US201203000933

PATIENT
  Sex: Female

DRUGS (1)
  1. PROZAC [Suspect]
     Dosage: UNK, UNKNOWN
     Route: 064

REACTIONS (6)
  - RESPIRATORY DISTRESS [None]
  - CARDIAC SEPTAL DEFECT [None]
  - ADVERSE EVENT [None]
  - MATERNAL EXPOSURE DURING PREGNANCY [None]
  - WITHDRAWAL SYNDROME [None]
  - PERSISTENT FOETAL CIRCULATION [None]
